FAERS Safety Report 5156757-8 (Version None)
Quarter: 2006Q4

REPORT INFORMATION
  Report Type: 
  Country: None (occurrence: None)
  Receive Date: 20061122
  Receipt Date: 20061114
  Transmission Date: 20070319
  Serious: Yes (Hospitalization)
  Sender: FDA-Public Use
  Company Number: JP-MERCK-0611USA05238

PATIENT
  Age: 56 Year
  Sex: Female

DRUGS (2)
  1. PRIMAXIN [Suspect]
     Indication: BRAIN ABSCESS
     Route: 042
     Dates: start: 20061004
  2. SEPAZON [Suspect]
     Indication: SCHIZOPHRENIA
     Route: 048
     Dates: start: 20060921

REACTIONS (1)
  - NEPHROGENIC DIABETES INSIPIDUS [None]
